FAERS Safety Report 5797779-3 (Version None)
Quarter: 2008Q2

REPORT INFORMATION
  Report Type: 
  Country: None (occurrence: None)
  Receive Date: 20080619
  Receipt Date: 20070802
  Transmission Date: 20081010
  Serious: Yes (Other)
  Sender: FDA-Public Use
  Company Number: 509877

PATIENT
  Age: 54 Year
  Sex: Female

DRUGS (7)
  1. ALLI [Suspect]
     Indication: WEIGHT CONTROL
     Dosage: ORAL
     Route: 048
  2. ACETAMINOPHEN [Suspect]
     Indication: COUGH
  3. ACETAMINOPHEN [Suspect]
     Indication: NASOPHARYNGITIS
  4. ACETAMINOPHEN [Suspect]
     Indication: PHARYNGOLARYNGEAL PAIN
  5. SUDAFED 12 HOUR [Suspect]
     Indication: DRUG USE FOR UNKNOWN INDICATION
  6. ASPIRIN [Concomitant]
  7. HEARTBURN MEDICATION (GASTROINTESTINAL DRUG NOS) [Concomitant]

REACTIONS (3)
  - HEPATIC ENZYME INCREASED [None]
  - NASOPHARYNGITIS [None]
  - PHARMACEUTICAL PRODUCT COMPLAINT [None]
